FAERS Safety Report 5876013-X (Version None)
Quarter: 2008Q3

REPORT INFORMATION
  Report Type: 
  Country: None (occurrence: None)
  Receive Date: 20080910
  Receipt Date: 20080902
  Transmission Date: 20090109
  Serious: Yes (Hospitalization)
  Sender: FDA-Public Use
  Company Number: DE-PURDUE-DEU_2008_0004479

PATIENT
  Age: 84 Year
  Sex: Female

DRUGS (1)
  1. OXYGESIC 10 MG [Suspect]
     Indication: ARTHRALGIA
     Dosage: 30 MG, DAILY
     Route: 048
     Dates: start: 20080401, end: 20080501

REACTIONS (2)
  - ECZEMA [None]
  - PRURITUS GENERALISED [None]
